FAERS Safety Report 20017721 (Version 2)
Quarter: 2022Q1

REPORT INFORMATION
  Report Type: Spontaneous
  Country: US (occurrence: None)
  Receive Date: 20211031
  Receipt Date: 20220105
  Transmission Date: 20220423
  Serious: No
  Sender: FDA-Public Use
  Company Number: 2021A787235

PATIENT
  Age: 67 Year
  Sex: Female
  Weight: 68 kg

DRUGS (3)
  1. BYDUREON BCISE [Suspect]
     Active Substance: EXENATIDE
     Indication: Type 2 diabetes mellitus
     Route: 065
  2. BYETTA [Suspect]
     Active Substance: EXENATIDE
     Indication: Type 2 diabetes mellitus
     Route: 065
  3. METFORMIN [Concomitant]
     Active Substance: METFORMIN HYDROCHLORIDE
     Dosage: UNKNOWN
     Route: 065

REACTIONS (6)
  - Hypoglycaemia [Recovered/Resolved]
  - Diabetes mellitus inadequate control [Unknown]
  - Drug ineffective [Recovered/Resolved]
  - Incorrect dose administered by device [Unknown]
  - Device malfunction [Unknown]
  - Needle issue [Unknown]

NARRATIVE: CASE EVENT DATE: 20210101
